FAERS Safety Report 13911222 (Version 4)
Quarter: 2018Q2

REPORT INFORMATION
  Report Type: Spontaneous
  Country: BR (occurrence: BR)
  Receive Date: 20170828
  Receipt Date: 20180430
  Transmission Date: 20180711
  Serious: Yes (Hospitalization, Other)
  Sender: FDA-Public Use
  Company Number: BR-SA-2017SA150399

PATIENT
  Age: 65 Year
  Sex: Female
  Weight: 45 kg

DRUGS (12)
  1. CLIKSTAR [Suspect]
     Active Substance: CLIKSTAR
     Indication: TYPE 1 DIABETES MELLITUS
  2. INSULIN [Concomitant]
     Active Substance: INSULIN NOS
     Indication: TYPE 1 DIABETES MELLITUS
     Dosage: MAXIMUM OF 10IU, BECAUSE IT VARIED ACCORDING TO GLYCEMIA LEVEL
     Route: 058
  3. CLIKSTAR [Suspect]
     Active Substance: CLIKSTAR
     Indication: TYPE 1 DIABETES MELLITUS
     Dates: start: 201308
  4. ALLSTAR (DEVICE) [Suspect]
     Active Substance: DEVICE
     Indication: TYPE 1 DIABETES MELLITUS
     Dates: start: 201403
  5. ALLSTAR (DEVICE) [Suspect]
     Active Substance: DEVICE
     Indication: TYPE 1 DIABETES MELLITUS
     Dates: start: 1978
  6. SIMVASTATIN. [Concomitant]
     Active Substance: SIMVASTATIN
     Indication: BLOOD CHOLESTEROL
     Route: 048
     Dates: start: 201703
  7. ALLSTAR (DEVICE) [Suspect]
     Active Substance: DEVICE
     Indication: TYPE 1 DIABETES MELLITUS
     Dates: start: 1978
  8. ALLSTAR (DEVICE) [Suspect]
     Active Substance: DEVICE
     Indication: TYPE 1 DIABETES MELLITUS
     Dates: start: 201403
  9. LANTUS [Suspect]
     Active Substance: INSULIN GLARGINE
     Indication: TYPE 1 DIABETES MELLITUS
     Dosage: 24IU IN THE MORNING AND 16IU AT NIGHT
     Route: 058
     Dates: start: 201308
  10. APIDRA [Suspect]
     Active Substance: INSULIN GLULISINE
     Indication: TYPE 1 DIABETES MELLITUS
     Dosage: 4- 5 IU DEPENDING ON GLYCEMIA LEVEL
     Route: 058
     Dates: start: 201308
  11. DIVELOL [Concomitant]
     Indication: HYPERTENSION
     Dosage: 6.25MG
     Route: 048
     Dates: start: 20170707
  12. DIOVAN [Concomitant]
     Active Substance: VALSARTAN
     Indication: HYPERTENSION
     Dosage: STRENGTH: 80 MG
     Route: 048
     Dates: start: 201703

REACTIONS (9)
  - Diarrhoea [Recovered/Resolved]
  - Thirst [Recovered/Resolved]
  - Blood glucose increased [Recovered/Resolved]
  - Device use issue [Unknown]
  - Expired product administered [Unknown]
  - Product use issue [Unknown]
  - Rectal neoplasm [Recovered/Resolved]
  - Blood glucose abnormal [Recovered/Resolved]
  - Pollakiuria [Recovered/Resolved]

NARRATIVE: CASE EVENT DATE: 201707
